FAERS Safety Report 23054018 (Version 5)
Quarter: 2025Q3

REPORT INFORMATION
  Report Type: Report from Study
  Country: JP (occurrence: JP)
  Receive Date: 20231011
  Receipt Date: 20250810
  Transmission Date: 20251020
  Serious: Yes (Death, Hospitalization, Other)
  Sender: ALEXION PHARMACEUTICALS
  Company Number: 2023A230197

PATIENT
  Age: 76 Year
  Sex: Male
  Weight: 59 kg

DRUGS (6)
  1. DURVALUMAB [Suspect]
     Active Substance: DURVALUMAB
     Indication: Non-small cell lung cancer
     Dates: start: 20230713, end: 20230921
  2. TREMELIMUMAB [Suspect]
     Active Substance: TREMELIMUMAB
     Indication: Non-small cell lung cancer
     Dates: start: 20230713, end: 20230921
  3. CARBOPLATIN [Suspect]
     Active Substance: CARBOPLATIN
     Indication: Non-small cell lung cancer
     Route: 065
     Dates: start: 20230713, end: 20230713
  4. CARBOPLATIN [Suspect]
     Active Substance: CARBOPLATIN
     Route: 065
     Dates: start: 20230815, end: 20230921
  5. PEMETREXED [Suspect]
     Active Substance: PEMETREXED
     Indication: Non-small cell lung cancer
     Route: 065
     Dates: start: 20230713, end: 20230713
  6. PEMETREXED [Suspect]
     Active Substance: PEMETREXED
     Route: 065
     Dates: start: 20230815, end: 20230921

REACTIONS (4)
  - Neutrophil count decreased [Recovered/Resolved]
  - Rash [Recovered/Resolved]
  - Cardiac failure acute [Fatal]
  - Off label use [Unknown]

NARRATIVE: CASE EVENT DATE: 20230719
